FAERS Safety Report 9055142 (Version 1)
Quarter: 2013Q1

REPORT INFORMATION
  Report Type: Spontaneous
  Country: US (occurrence: US)
  Receive Date: 20130206
  Receipt Date: 20130206
  Transmission Date: 20140127
  Serious: Yes (Other)
  Sender: FDA-Public Use
  Company Number: US-COVIDIEN/TYCO HEALTHCARE/MALLINCKRODT-T201300384

PATIENT
  Age: 50 Year
  Sex: Female
  Weight: 70.3 kg

DRUGS (3)
  1. HYDROCODONE/ACETAMINOPHEN [Suspect]
     Indication: PAIN
     Dosage: 10/500 MG, 4/DAY
     Route: 048
     Dates: start: 20121226
  2. MORPHINE [Concomitant]
     Indication: PAIN
     Dosage: 60 MG, BID
  3. SOMA [Concomitant]
     Indication: MUSCLE SPASMS
     Dosage: 350 MG, 4/DAY

REACTIONS (3)
  - Anaphylactic reaction [Not Recovered/Not Resolved]
  - Tachycardia [Not Recovered/Not Resolved]
  - Drug ineffective [Not Recovered/Not Resolved]
